FAERS Safety Report 22033603 (Version 1)
Quarter: 2023Q1

REPORT INFORMATION
  Report Type: Spontaneous
  Country: US (occurrence: US)
  Receive Date: 20230224
  Receipt Date: 20230224
  Transmission Date: 20230418
  Serious: Yes (Other)
  Sender: FDA-Public Use
  Company Number: US-AMERICAN REGENT INC-2023000468

PATIENT
  Age: 3 Year
  Sex: Female

DRUGS (6)
  1. GANCICLOVIR [Suspect]
     Active Substance: GANCICLOVIR
     Indication: Cytomegalovirus viraemia
     Dosage: 5 MG/KG Q12 HOURS
     Route: 042
  2. GANCICLOVIR [Suspect]
     Active Substance: GANCICLOVIR
     Indication: Drug resistance
  3. VALGANCICLOVIR [Suspect]
     Active Substance: VALGANCICLOVIR
     Indication: Cytomegalovirus viraemia
     Dosage: UNK
     Route: 065
  4. FOSCARNET [Suspect]
     Active Substance: FOSCARNET
     Indication: Cytomegalovirus viraemia
     Dosage: 60 MG/KG/DOSE, Q12 HOURS (FOR NEARLY 2 WEEKS)
     Route: 065
  5. FOSCARNET [Suspect]
     Active Substance: FOSCARNET
     Dosage: 60 MG/KG/DOSE, Q8 HOURS
     Route: 065
  6. FOSCARNET [Suspect]
     Active Substance: FOSCARNET
     Dosage: 2400 MICROGRAM, SINGLE

REACTIONS (6)
  - Drug resistance [Unknown]
  - Clostridium difficile infection [Unknown]
  - Adenovirus infection [Unknown]
  - Lymphopenia [Unknown]
  - Cytomegalovirus chorioretinitis [Recovering/Resolving]
  - Product use issue [Unknown]
